FAERS Safety Report 5911889-9 (Version None)
Quarter: 2008Q4

REPORT INFORMATION
  Report Type: 
  Country: None (occurrence: None)
  Receive Date: 20081003
  Receipt Date: 20080916
  Transmission Date: 20090506
  Serious: Yes (Other)
  Sender: FDA-Public Use
  Company Number: 2008BI024086

PATIENT
  Age: 76 Year
  Sex: Female

DRUGS (15)
  1. ZEVALIN [Suspect]
     Indication: DISEASE PROGRESSION
     Dosage: 1125 MBQ; X1; IV
     Route: 042
     Dates: start: 20080821, end: 20080821
  2. RITUXIMAB (CON.) [Concomitant]
  3. EMCONCOR (CON.) [Concomitant]
  4. SIMVASTATIN (CON.) [Concomitant]
  5. CYCLOPHOSPHAMIDE (PREV.) [Concomitant]
  6. CYCLOPHOSPHAMIDE (PREV.) [Concomitant]
  7. DOXORUBICIN (PREV.) [Concomitant]
  8. VINCRISTINE (PREV.) [Concomitant]
  9. VINDESINE (PREV.) [Concomitant]
  10. PREDNISONE (PREV.) [Concomitant]
  11. PREDNISONE (PREV.) [Concomitant]
  12. MABTHERA (PREV.) [Concomitant]
  13. MABTHERA (PREV.) [Concomitant]
  14. LEUKERAN (PREV.) [Concomitant]
  15. LEUKERAN (PREV.) [Concomitant]

REACTIONS (1)
  - VISION BLURRED [None]
